FAERS Safety Report 7323041-3 (Version None)
Quarter: 2011Q1

REPORT INFORMATION
  Report Type: 
  Country: None (occurrence: None)
  Receive Date: 20110301
  Receipt Date: 20110301
  Transmission Date: 20110831
  Serious: Yes (Death, Hospitalization)
  Sender: FDA-Public Use
  Company Number: PHHO2007BE18449

PATIENT
  Sex: Male
  Weight: 62 kg

DRUGS (3)
  1. SANDOSTATIN LAR [Suspect]
     Indication: CARCINOID TUMOUR
     Dosage: DOUBLE BLIND
     Route: 048
     Dates: start: 20070924
  2. SANDOSTATIN LAR [Suspect]
     Dosage: 0.5 MG, TID
     Dates: start: 20080102, end: 20080104
  3. PLACEBO [Suspect]
     Indication: CARCINOID TUMOUR
     Dosage: PLACEBO
     Route: 048
     Dates: start: 20070924

REACTIONS (17)
  - DIARRHOEA [None]
  - DISEASE PROGRESSION [None]
  - FATIGUE [None]
  - FLUSHING [None]
  - VERTIGO [None]
  - WEIGHT DECREASED [None]
  - PLEURAL DISORDER [None]
  - CONFUSIONAL STATE [None]
  - DEPRESSION [None]
  - GENERAL PHYSICAL CONDITION ABNORMAL [None]
  - PYREXIA [None]
  - ORTHOSTATIC HYPOTENSION [None]
  - DYSPNOEA [None]
  - COUGH [None]
  - ABDOMINAL PAIN [None]
  - LIVER DISORDER [None]
  - ASTHENIA [None]
